FAERS Safety Report 8565111 (Version 2)
Quarter: 2013Q2

REPORT INFORMATION
  Report Type: Spontaneous
  Country: US (occurrence: US)
  Receive Date: 20120516
  Receipt Date: 20130530
  Transmission Date: 20140414
  Serious: Yes (Hospitalization)
  Sender: FDA-Public Use
  Company Number: US-ASTRAZENECA-2011SE28878

PATIENT
  Age: 45 Year
  Sex: Female
  Weight: 65.8 kg

DRUGS (10)
  1. SEROQUEL XR [Suspect]
     Indication: BIPOLAR DISORDER
     Route: 048
  2. SEROQUEL XR [Suspect]
     Indication: ANXIETY
     Route: 048
  3. SEROQUEL XR [Suspect]
     Indication: DEPRESSION
     Route: 048
  4. SEROQUEL XR [Suspect]
     Indication: BIPOLAR DISORDER
     Route: 048
  5. SEROQUEL XR [Suspect]
     Indication: ANXIETY
     Route: 048
  6. SEROQUEL XR [Suspect]
     Indication: DEPRESSION
     Route: 048
  7. TRAZAVAIR [Concomitant]
     Indication: HIV INFECTION
     Dosage: 300 MG, 150 MG, 300 MG DAILY
  8. LISINOPRIL [Concomitant]
     Indication: HYPERTENSION
     Dosage: 20/12.5 MG DAILY
  9. REQUIP [Concomitant]
     Indication: RESTLESS LEGS SYNDROME
  10. PROZAC [Concomitant]
     Indication: DEPRESSION

REACTIONS (4)
  - Mental impairment [Unknown]
  - Abnormal behaviour [Unknown]
  - Drug dose omission [Unknown]
  - Drug ineffective [Unknown]
